FAERS Safety Report 8326440 (Version 2)
Quarter: 2013Q2

REPORT INFORMATION
  Report Type: Spontaneous
  Country: BE (occurrence: None)
  Receive Date: 20111228
  Receipt Date: 20130611
  Transmission Date: 20140414
  Serious: Yes (Other)
  Sender: FDA-Public Use
  Company Number: US-2011-10926

PATIENT
  Age: 45 Year
  Sex: Female

DRUGS (3)
  1. TOLVAPTAN [Suspect]
     Indication: CONGENITAL CYSTIC KIDNEY DISEASE
     Dosage: 90 MG MILLIGRAM(S, DAILY DOSE, ORAL
     Route: 048
     Dates: start: 20110430, end: 20111115
  2. RAMIPRIL [Concomitant]
  3. NOMEGESTROL (NOMEGESTROL) [Concomitant]

REACTIONS (19)
  - ALANINE AMINOTRANSFERASE INCREASED [None]
  - ASPARTATE AMINOTRANSFERASE INCREASED [None]
  - Hepatic cyst [None]
  - Liver transplant [None]
  - Transplant failure [None]
  - Hepatic artery thrombosis [None]
  - Haemoglobin decreased [None]
  - Haematocrit decreased [None]
  - Mean cell volume decreased [None]
  - Mean cell haemoglobin decreased [None]
  - Monocyte percentage decreased [None]
  - Monocyte count decreased [None]
  - Blood iron decreased [None]
  - Thrombin time prolonged [None]
  - Fibrin D dimer increased [None]
  - Blood urea increased [None]
  - Blood creatinine increased [None]
  - Glomerular filtration rate decreased [None]
  - Basophil percentage decreased [None]
